FAERS Safety Report 4603883-5 (Version None)
Quarter: 2005Q1

REPORT INFORMATION
  Report Type: 
  Country: None (occurrence: None)
  Receive Date: 20050308
  Receipt Date: 20050223
  Transmission Date: 20050727
  Serious: Yes (Disabling)
  Sender: FDA-Public Use
  Company Number: HQWYE942413DEC04

PATIENT
  Age: 46 Year
  Sex: Male
  Weight: 74.91 kg

DRUGS (4)
  1. EFFEXOR XR [Suspect]
     Indication: AMNESIA
     Dosage: SEE IMAGE
     Route: 048
     Dates: start: 20030401, end: 20040801
  2. EFFEXOR XR [Suspect]
     Indication: DEPRESSION
     Dosage: SEE IMAGE
     Route: 048
     Dates: start: 20030401, end: 20040801
  3. EFFEXOR XR [Suspect]
     Indication: AMNESIA
     Dosage: SEE IMAGE
     Route: 048
     Dates: start: 20040801, end: 20040926
  4. EFFEXOR XR [Suspect]
     Indication: DEPRESSION
     Dosage: SEE IMAGE
     Route: 048
     Dates: start: 20040801, end: 20040926

REACTIONS (5)
  - ANOSMIA [None]
  - DRUG WITHDRAWAL SYNDROME [None]
  - DYSGEUSIA [None]
  - PARAESTHESIA [None]
  - PAROSMIA [None]
